FAERS Safety Report 10596591 (Version 1)
Quarter: 2014Q4

REPORT INFORMATION
  Report Type: Spontaneous
  Country: PT (occurrence: PT)
  Receive Date: 20141120
  Receipt Date: 20141120
  Transmission Date: 20150529
  Serious: Yes (Other)
  Sender: FDA-Public Use
  Company Number: PT-WATSON-2014-24782

PATIENT
  Sex: Male

DRUGS (6)
  1. HALOPERIDOL (UNKNOWN) [Suspect]
     Active Substance: HALOPERIDOL
     Dosage: 5 UNK, UNK
     Route: 065
  2. ALPRAZOLAM DOC [Concomitant]
     Indication: PRODUCT USED FOR UNKNOWN INDICATION
     Dosage: 0.25 MG, UNKNOWN
     Route: 065
  3. RISPERIDON [Concomitant]
     Active Substance: RISPERIDONE
     Indication: PRODUCT USED FOR UNKNOWN INDICATION
     Dosage: MAX 2 MG
     Route: 065
  4. SERTRALINE [Concomitant]
     Active Substance: SERTRALINE HYDROCHLORIDE
     Indication: OBSESSIVE-COMPULSIVE DISORDER
     Dosage: 50 MG, UNKNOWN
     Route: 065
  5. HALOPERIDOL (UNKNOWN) [Suspect]
     Active Substance: HALOPERIDOL
     Indication: PRODUCT USED FOR UNKNOWN INDICATION
     Dosage: 7.5 MG, UNKNOWN
     Route: 065
  6. TRIHEXYPHENIDYL [Concomitant]
     Active Substance: TRIHEXYPHENIDYL
     Indication: PRODUCT USED FOR UNKNOWN INDICATION
     Dosage: 2 MG, UNK
     Route: 065

REACTIONS (3)
  - Extrapyramidal disorder [Unknown]
  - Sedation [Unknown]
  - Weight increased [Unknown]
